FAERS Safety Report 22224457 (Version 1)
Quarter: 2023Q2

REPORT INFORMATION
  Report Type: Spontaneous
  Country: US (occurrence: None)
  Receive Date: 20230417
  Receipt Date: 20230417
  Transmission Date: 20230722
  Serious: Yes (Hospitalization)
  Sender: FDA-Public Use
  Company Number: None

PATIENT
  Sex: Female

DRUGS (1)
  1. ERLOTINIB [Suspect]
     Active Substance: ERLOTINIB
     Dosage: FREQUENCY : DAILY;?
     Route: 048

REACTIONS (9)
  - Dry mouth [None]
  - Oral discomfort [None]
  - Odynophagia [None]
  - Vision blurred [None]
  - Vertigo [None]
  - Fatigue [None]
  - Brain neoplasm malignant [None]
  - Central nervous system lesion [None]
  - Cerebral haemorrhage [None]
